FAERS Safety Report 17995869 (Version 2)
Quarter: 2020Q3

REPORT INFORMATION
  Report Type: Spontaneous
  Country: NL (occurrence: NL)
  Receive Date: 20200708
  Receipt Date: 20200728
  Transmission Date: 20201103
  Serious: Yes (Death, Hospitalization)
  Sender: FDA-Public Use
  Company Number: NL-PFIZER INC-2020260697

PATIENT
  Age: 61 Year
  Sex: Male

DRUGS (9)
  1. CARBOPLATIN. [Suspect]
     Active Substance: CARBOPLATIN
     Dosage: DATE OF MOST RECENT DOSE OF CARBOPLATIN PRIOR TO AE (18MAR2020)
     Dates: start: 20200318
  2. BEVACIZUMAB. [Suspect]
     Active Substance: BEVACIZUMAB
     Indication: NON-SMALL CELL LUNG CANCER
     Dosage: 1625 MG, EVERY 3 WEEKS
     Route: 042
     Dates: start: 20200107
  3. BEVACIZUMAB. [Suspect]
     Active Substance: BEVACIZUMAB
     Dosage: DATE OF MOST RECENT DOSE OF BEVACIZUMAB PRIOR TO AE (20MAY2020)
     Dates: start: 20200520
  4. MORPHINE [Concomitant]
     Active Substance: MORPHINE
     Dosage: 30 MG
     Dates: start: 20200531
  5. IPRATROPIUM [Concomitant]
     Active Substance: IPRATROPIUM
     Dosage: 250 MG
     Dates: start: 20200531
  6. CEFUROXIM [CEFUROXIME] [Concomitant]
     Active Substance: CEFUROXIME
     Dosage: 1500 MG
     Dates: start: 20200531
  7. PACLITAXEL. [Suspect]
     Active Substance: PACLITAXEL
     Indication: NON-SMALL CELL LUNG CANCER
     Dosage: 470 MG, EVERY 3 WEEKS
     Route: 042
     Dates: start: 20200107
  8. CARBOPLATIN. [Suspect]
     Active Substance: CARBOPLATIN
     Indication: NON-SMALL CELL LUNG CANCER
     Dosage: 900 MG, EVERY 3 WEEKS
     Route: 042
     Dates: start: 20200107
  9. PACLITAXEL. [Suspect]
     Active Substance: PACLITAXEL
     Dosage: DATE OF MOST RECENT DOSE OF PACLITAXEL PRIOR TO AE (18MAR2020)
     Dates: start: 20200318

REACTIONS (2)
  - Pulmonary haemorrhage [Fatal]
  - Pneumothorax [Not Recovered/Not Resolved]

NARRATIVE: CASE EVENT DATE: 20200530
